FAERS Safety Report 6257503-7 (Version None)
Quarter: 2009Q3

REPORT INFORMATION
  Report Type: 
  Country: None (occurrence: None)
  Receive Date: 20090706
  Receipt Date: 20090626
  Transmission Date: 20100115
  Serious: Yes (Death)
  Sender: FDA-Public Use
  Company Number: US-TYCO HEALTHCARE/MALLINCKRODT-T200901313

PATIENT
  Sex: Male

DRUGS (4)
  1. OPTIMARK [Suspect]
     Dosage: UNK
     Dates: start: 20040126, end: 20040126
  2. MAGNEVIST [Suspect]
     Dosage: UNK
     Dates: start: 20021220, end: 20021220
  3. MAGNEVIST [Suspect]
     Dosage: UNK
     Dates: start: 20030513, end: 20030513
  4. OMNISCAN [Suspect]
     Dosage: UNK
     Dates: start: 20031201, end: 20031201

REACTIONS (1)
  - NEPHROGENIC SYSTEMIC FIBROSIS [None]
